FAERS Safety Report 15793230 (Version 2)
Quarter: 2019Q1

REPORT INFORMATION
  Report Type: Spontaneous
  Country: US (occurrence: US)
  Receive Date: 20190107
  Receipt Date: 20190215
  Transmission Date: 20190417
  Serious: No
  Sender: FDA-Public Use
  Company Number: US-TEVA-2018-US-987742

PATIENT
  Sex: Female

DRUGS (1)
  1. TEVA BUPROPION XL [Suspect]
     Active Substance: BUPROPION
     Route: 065

REACTIONS (5)
  - Aggression [Unknown]
  - Drug ineffective [Unknown]
  - Product substitution issue [Unknown]
  - Depression [Unknown]
  - Stress [Unknown]
